FAERS Safety Report 6492640-3 (Version None)
Quarter: 2009Q4

REPORT INFORMATION
  Report Type: 
  Country: None (occurrence: None)
  Receive Date: 20091214
  Receipt Date: 20091210
  Transmission Date: 20100525
  Serious: Yes (Death, Other)
  Sender: FDA-Public Use
  Company Number: PHHY2009BR54791

PATIENT
  Sex: Female

DRUGS (1)
  1. DIOVAN AMLO [Suspect]
     Indication: HYPERTENSION
     Dosage: ONE TABLET OF EACH ACTIVE, ONCE DAILY.
     Route: 048
     Dates: start: 20010101

REACTIONS (2)
  - CARDIO-RESPIRATORY ARREST [None]
  - DEATH [None]
